FAERS Safety Report 5442292-6 (Version None)
Quarter: 2007Q3

REPORT INFORMATION
  Report Type: 
  Country: None (occurrence: None)
  Receive Date: 20070731
  Receipt Date: 20070612
  Transmission Date: 20080115
  Serious: No
  Sender: FDA-Public Use
  Company Number: US200706003013

PATIENT
  Age: 47 Year
  Sex: Female
  Weight: 117.9 kg

DRUGS (5)
  1. BYETTA [Suspect]
     Indication: TYPE 2 DIABETES MELLITUS
     Dosage: 5 UG, 2/D, SUBCUTANEOUS; 10 UG, 2/D, SUBCUTANEOUS
     Route: 058
  2. EXENATIDE (EXENATIDE PEN) [Concomitant]
  3. DRUG USED IN DIABETES [Concomitant]
  4. GLUCOPHAGE [Concomitant]
  5. PRANDIN (DEFLAZACORT) [Concomitant]

REACTIONS (2)
  - BLOOD GLUCOSE INCREASED [None]
  - WEIGHT DECREASED [None]
